FAERS Safety Report 6301444-3 (Version None)
Quarter: 2009Q3

REPORT INFORMATION
  Report Type: 
  Country: None (occurrence: None)
  Receive Date: 20090807
  Receipt Date: 20090730
  Transmission Date: 20100115
  Serious: Yes (Hospitalization)
  Sender: FDA-Public Use
  Company Number: BR-ABBOTT-09P-020-0588911-00

PATIENT
  Sex: Female
  Weight: 47 kg

DRUGS (9)
  1. HUMIRA [Suspect]
     Indication: RHEUMATOID ARTHRITIS
     Route: 058
     Dates: start: 20070101
  2. HUMIRA [Suspect]
  3. HYDROXYZINE HYDROCHLORIDE (HIXIZINE) [Concomitant]
     Indication: HYPERSENSITIVITY
     Route: 048
     Dates: start: 20080401
  4. MOISTURIZE CREAM (SEE NARRATIVE SECTION) [Concomitant]
     Indication: SKIN REACTION
     Route: 061
     Dates: start: 20080401
  5. CLONAZEPAM [Concomitant]
     Indication: SLEEP DISORDER THERAPY
     Route: 048
     Dates: start: 20090501
  6. METHOTREXATE [Concomitant]
     Indication: DRUG USE FOR UNKNOWN INDICATION
     Dosage: 2.5 MG FORM STRENGTH
     Route: 048
     Dates: start: 20090401
  7. FOLIC ACID (AFOPIC) [Concomitant]
     Indication: LIVER DISORDER
     Dosage: FORM STRENGTH 5 MG
     Route: 048
     Dates: start: 20090401
  8. OMEPRAZOLE [Concomitant]
     Indication: GASTRIC DISORDER
     Route: 048
     Dates: start: 20090401
  9. AMITRIPTYLINE HYDROCHLORIDE (TRYPTANOL) [Concomitant]
     Indication: DEPRESSION
     Dosage: FROM STRENGTH 25 MG
     Route: 048
     Dates: start: 20080401

REACTIONS (7)
  - ARTHRITIS INFECTIVE [None]
  - BLISTER [None]
  - DYSSTASIA [None]
  - ERYTHEMA [None]
  - IMMUNODEFICIENCY [None]
  - INSOMNIA [None]
  - PAIN [None]
